FAERS Safety Report 11932476 (Version 3)
Quarter: 2016Q1

REPORT INFORMATION
  Report Type: Report from Study
  Country: PR (occurrence: PR)
  Receive Date: 20160120
  Receipt Date: 20160225
  Transmission Date: 20160526
  Serious: Yes (Hospitalization)
  Sender: FDA-Public Use
  Company Number: PR-ABBVIE-16K-131-1540048-00

PATIENT
  Age: 19 Year
  Sex: Male
  Weight: 43.13 kg

DRUGS (1)
  1. HUMIRA [Suspect]
     Active Substance: ADALIMUMAB
     Indication: PRODUCT USED FOR UNKNOWN INDICATION
     Route: 058
     Dates: start: 20150629, end: 201512

REACTIONS (2)
  - Intestinal obstruction [Recovering/Resolving]
  - Enteritis [Unknown]

NARRATIVE: CASE EVENT DATE: 201511
